FAERS Safety Report 4355478-9 (Version None)
Quarter: 2004Q2

REPORT INFORMATION
  Report Type: 
  Country: None (occurrence: None)
  Receive Date: 20040510
  Receipt Date: 20040329
  Transmission Date: 20050107
  Serious: Yes (Hospitalization)
  Sender: FDA-Public Use
  Company Number: CA-MERCK-0403CAN00189

PATIENT
  Age: 57 Year
  Sex: Male
  Weight: 86 kg

DRUGS (3)
  1. ACETAMINOPHEN AND CODEINE PHOSPHATE [Concomitant]
     Indication: PAIN
     Route: 065
     Dates: start: 20040320, end: 20040320
  2. VIOXX [Suspect]
     Indication: PAIN
     Route: 048
     Dates: start: 20040320, end: 20040320
  3. VIOXX [Suspect]
     Route: 048
     Dates: start: 20040321, end: 20040321

REACTIONS (1)
  - EPILEPSY [None]
